FAERS Safety Report 11480426 (Version 1)
Quarter: 2015Q3

REPORT INFORMATION
  Report Type: Spontaneous
  Country: US (occurrence: US)
  Receive Date: 20150909
  Receipt Date: 20150909
  Transmission Date: 20151125
  Serious: No
  Sender: FDA-Public Use
  Company Number: US-ASTRAZENECA-2015SE84188

PATIENT
  Sex: Male
  Weight: 105.2 kg

DRUGS (1)
  1. BYETTA [Suspect]
     Active Substance: EXENATIDE
     Dosage: 250 MCG / 1.2 ML PEN,TWO TIMES A DAY
     Route: 065
     Dates: start: 20150817, end: 20150828

REACTIONS (3)
  - Throat tightness [Not Recovered/Not Resolved]
  - Oedema peripheral [Not Recovered/Not Resolved]
  - Dysphonia [Not Recovered/Not Resolved]
